FAERS Safety Report 7600358-6 (Version None)
Quarter: 2011Q2

REPORT INFORMATION
  Report Type: 
  Country: None (occurrence: None)
  Receive Date: 20110629
  Receipt Date: 20110621
  Transmission Date: 20111010
  Serious: Yes (Hospitalization)
  Sender: FDA-Public Use
  Company Number: ACO_25360_2011

PATIENT
  Age: 52 Year
  Sex: Female

DRUGS (2)
  1. CIPRO [Concomitant]
  2. TIZANIDINE HYDROCHLORIDE [Suspect]
     Indication: PRODUCT USED FOR UNKNOWN INDICATION

REACTIONS (3)
  - URINARY TRACT INFECTION [None]
  - BIPOLAR DISORDER [None]
  - HYPERSENSITIVITY [None]
